FAERS Safety Report 7705281-4 (Version None)
Quarter: 2011Q3

REPORT INFORMATION
  Report Type: 
  Country: None (occurrence: None)
  Receive Date: 20110818
  Receipt Date: 20110729
  Transmission Date: 20111222
  Serious: Yes (Other)
  Sender: FDA-Public Use
  Company Number: 3005174370-2011-00005

PATIENT
  Sex: Female

DRUGS (1)
  1. CLINPRO 5000 1.1% SODIUM  FLUORIDE ANTI-CAVITY [Suspect]

REACTIONS (2)
  - PHARYNGEAL OEDEMA [None]
  - DYSPNOEA [None]
